FAERS Safety Report 10340767 (Version 2)
Quarter: 2014Q3

REPORT INFORMATION
  Report Type: Spontaneous
  Country: JP (occurrence: JP)
  Receive Date: 20140724
  Receipt Date: 20140905
  Transmission Date: 20150326
  Serious: Yes (Other)
  Sender: FDA-Public Use
  Company Number: JP-GILEAD-2014-0109701

PATIENT
  Sex: Male

DRUGS (2)
  1. LAMIVUDINE. [Concomitant]
     Active Substance: LAMIVUDINE
     Indication: CHRONIC HEPATITIS B
     Route: 048
  2. HEPSERA [Suspect]
     Active Substance: ADEFOVIR DIPIVOXIL
     Indication: CHRONIC HEPATITIS B
     Route: 048

REACTIONS (11)
  - Spinal compression fracture [Recovering/Resolving]
  - Back pain [Recovering/Resolving]
  - Chest pain [Recovering/Resolving]
  - Arthralgia [Recovering/Resolving]
  - Pain in extremity [Recovering/Resolving]
  - Osteomalacia [Recovering/Resolving]
  - Bone pain [Recovering/Resolving]
  - Blood phosphorus decreased [Recovering/Resolving]
  - Fanconi syndrome acquired [Recovering/Resolving]
  - Pain [Recovering/Resolving]
  - Spinal pain [Recovering/Resolving]
